FAERS Safety Report 11144168 (Version 1)
Quarter: 2015Q2

REPORT INFORMATION
  Report Type: Spontaneous
  Country: US (occurrence: US)
  Receive Date: 20150526
  Receipt Date: 20150526
  Transmission Date: 20150821
  Serious: Yes (Other)
  Sender: FDA-Public Use
  Company Number: US-BAYER-2015-245653

PATIENT

DRUGS (2)
  1. ALEVE [Suspect]
     Active Substance: NAPROXEN SODIUM
     Dosage: UNK
  2. LETAIRIS [Concomitant]
     Active Substance: AMBRISENTAN
     Dosage: UNK

REACTIONS (13)
  - Abdominal pain lower [Unknown]
  - Diarrhoea [None]
  - Palpitations [Unknown]
  - Fall [Unknown]
  - Drug dose omission [None]
  - Pain in extremity [Unknown]
  - Tachycardia [Unknown]
  - Diverticulitis [Unknown]
  - Headache [Unknown]
  - Back injury [Unknown]
  - Pain in jaw [Unknown]
  - Back pain [Unknown]
  - Adverse event [Unknown]
